FAERS Safety Report 15319234 (Version 1)
Quarter: 2018Q3

REPORT INFORMATION
  Report Type: Report from Study
  Country: US (occurrence: US)
  Receive Date: 20180826
  Receipt Date: 20180826
  Transmission Date: 20181010
  Serious: Yes (Hospitalization)
  Sender: FDA-Public Use
  Company Number: PHHY2018US079648

PATIENT
  Sex: Female

DRUGS (1)
  1. TOBI [Suspect]
     Active Substance: TOBRAMYCIN
     Indication: CYSTIC FIBROSIS
     Dosage: (ON CYCLE : 28 DAYS TAKING MEDICATION FOLLOWED BY 28 DAYS OFF MEDICATION;OFF CYCLE)
     Route: 055

REACTIONS (2)
  - Condition aggravated [Unknown]
  - Cystic fibrosis [Unknown]
